FAERS Safety Report 5818413-X (Version None)
Quarter: 2008Q3

REPORT INFORMATION
  Report Type: 
  Country: None (occurrence: None)
  Receive Date: 20080718
  Receipt Date: 20080714
  Transmission Date: 20090109
  Serious: Yes (Death, Hospitalization, Other)
  Sender: FDA-Public Use
  Company Number: 2008SP014251

PATIENT
  Age: 66 Year
  Sex: Male

DRUGS (9)
  1. PEGINTERFERON ALFA-2B (S-P) (PEGINTERFERON ALFA-2B) [Suspect]
     Indication: HEPATITIS C
     Dosage: 180 MCG; QW; SC
     Route: 058
     Dates: start: 20050125, end: 20050218
  2. RIBAVIRIN [Suspect]
     Indication: HEPATITIS C
     Dosage: 600 MG; BID; PO
     Route: 048
     Dates: start: 20050125, end: 20050218
  3. FLUOXETINE [Concomitant]
  4. FUROSEMIDE [Concomitant]
  5. METHADONE HCL [Concomitant]
  6. OMEPRAZOLE [Concomitant]
  7. ALBUTEROL [Concomitant]
  8. SPIROLACTON [Concomitant]
  9. THIAMINE [Concomitant]

REACTIONS (13)
  - BLOOD BILIRUBIN INCREASED [None]
  - BLOOD CULTURE POSITIVE [None]
  - ENCEPHALOPATHY [None]
  - GASTRITIS [None]
  - HAEMORRHAGIC DIATHESIS [None]
  - HEPATIC FAILURE [None]
  - HYPOTENSION [None]
  - HYPOTHERMIA [None]
  - PANCREATITIS CHRONIC [None]
  - PNEUMONIA STREPTOCOCCAL [None]
  - RENAL FAILURE ACUTE [None]
  - SOFT TISSUE HAEMORRHAGE [None]
  - VOLUME BLOOD DECREASED [None]
